FAERS Safety Report 5258769-2 (Version None)
Quarter: 2007Q1

REPORT INFORMATION
  Report Type: 
  Country: None (occurrence: None)
  Receive Date: 20070306
  Receipt Date: 20070306
  Transmission Date: 20070707
  Serious: Yes (Other)
  Sender: FDA-Public Use
  Company Number: None

PATIENT
  Sex: Female
  Weight: 58.514 kg

DRUGS (6)
  1. OMALIZUMAB   150 MG   NOVARTIS [Suspect]
     Indication: ASTHMA
     Dosage: 375 MG   EVERY 2 WEEKS  SQ
     Route: 058
     Dates: start: 20070131, end: 20070301
  2. FLOVENT [Concomitant]
  3. FORADIL [Concomitant]
  4. ALBUTEROL [Concomitant]
  5. ZYFLO [Concomitant]
  6. THEOPHYLLINE [Concomitant]

REACTIONS (2)
  - RASH MACULO-PAPULAR [None]
  - RASH PRURITIC [None]
